FAERS Safety Report 9412644 (Version 1)
Quarter: 2013Q3

REPORT INFORMATION
  Report Type: Spontaneous
  Country: FR (occurrence: FR)
  Receive Date: 20130722
  Receipt Date: 20130722
  Transmission Date: 20140515
  Serious: Yes (Other)
  Sender: FDA-Public Use
  Company Number: FR-PFIZER INC-2013206958

PATIENT
  Age: 23 Year
  Sex: Female

DRUGS (1)
  1. TRINORDIOL [Suspect]
     Indication: ORAL CONTRACEPTION
     Dosage: UNK
     Route: 048
     Dates: start: 2010

REACTIONS (3)
  - Abortion spontaneous [Recovered/Resolved]
  - Drug ineffective [Recovered/Resolved]
  - Unintended pregnancy [Recovered/Resolved]
